FAERS Safety Report 17301269 (Version 5)
Quarter: 2020Q2

REPORT INFORMATION
  Report Type: Report from Study
  Country: US (occurrence: US)
  Receive Date: 20200122
  Receipt Date: 20200601
  Transmission Date: 20200713
  Serious: Yes (Hospitalization, Other)
  Sender: FDA-Public Use
  Company Number: US-PFIZER INC-2019504765

PATIENT
  Age: 75 Year
  Sex: Female

DRUGS (7)
  1. IBRANCE [Suspect]
     Active Substance: PALBOCICLIB
     Dosage: 125 MG, CYCLIC, (DAILY FOR 21 DAYS AND OFF 7 DAYS)
     Route: 048
     Dates: start: 20200218
  2. IBRANCE [Suspect]
     Active Substance: PALBOCICLIB
     Dosage: 125 MG, CYCLIC, (DAILY FOR 21 DAYS AND OFF 7 DAYS)
     Route: 048
     Dates: start: 20200519
  3. IBRANCE [Suspect]
     Active Substance: PALBOCICLIB
     Indication: BREAST CANCER METASTATIC
     Dosage: 125 MG, UNK
     Route: 048
     Dates: start: 20191106, end: 20191216
  4. LETROZOLE. [Concomitant]
     Active Substance: LETROZOLE
     Dosage: 2.5 MG, DAILY
     Route: 048
     Dates: start: 20191116
  5. IBRANCE [Suspect]
     Active Substance: PALBOCICLIB
     Dosage: 125 MG, CYCLIC, (DAILY FOR 21 DAYS AND OFF 7 DAYS)
     Route: 048
     Dates: start: 20200121
  6. IBRANCE [Suspect]
     Active Substance: PALBOCICLIB
     Indication: BREAST CANCER STAGE IV
     Dosage: 125 MG, CYCLIC (DAILY FOR 21 DAYS, AND OFF 7 DAYS)
     Route: 048
     Dates: start: 20191115
  7. LETROZOLE. [Concomitant]
     Active Substance: LETROZOLE
     Indication: BREAST CANCER FEMALE
     Dosage: 2.5 MG, DAILY
     Route: 048
     Dates: start: 20191115

REACTIONS (6)
  - Laboratory test abnormal [Recovering/Resolving]
  - Gastric disorder [Unknown]
  - Bone marrow failure [Unknown]
  - Dyspnoea [Recovered/Resolved]
  - Urinary tract infection [Unknown]
  - Pulmonary embolism [Recovered/Resolved]

NARRATIVE: CASE EVENT DATE: 2019
